FAERS Safety Report 19454583 (Version 1)
Quarter: 2021Q2

REPORT INFORMATION
  Report Type: Spontaneous
  Country: US (occurrence: US)
  Receive Date: 20210623
  Receipt Date: 20210623
  Transmission Date: 20210717
  Serious: No
  Sender: FDA-Public Use
  Company Number: US-ORGANON-O2106USA001473

PATIENT
  Sex: Female

DRUGS (2)
  1. NASONEX [Suspect]
     Active Substance: MOMETASONE FUROATE
     Indication: INNER EAR DISORDER
     Dosage: UNK
     Route: 045
  2. NASONEX [Suspect]
     Active Substance: MOMETASONE FUROATE
     Indication: INNER EAR DISORDER
     Dosage: UNK
     Route: 045

REACTIONS (3)
  - Product use in unapproved indication [Unknown]
  - Product availability issue [Unknown]
  - No adverse event [Unknown]
